FAERS Safety Report 14552526 (Version 1)
Quarter: 2018Q1

REPORT INFORMATION
  Report Type: Spontaneous
  Country: US (occurrence: US)
  Receive Date: 20180220
  Receipt Date: 20180220
  Transmission Date: 20180509
  Serious: No
  Sender: FDA-Public Use
  Company Number: US-009507513-1802USA007445

PATIENT
  Age: 26 Year
  Sex: Female
  Weight: 55.9 kg

DRUGS (1)
  1. ETONOGESTREL IMPLANT- UNKNOWN [Suspect]
     Active Substance: ETONOGESTREL
     Dosage: 1 IMPLANT, UNK
     Route: 059
     Dates: start: 201508, end: 20180208

REACTIONS (2)
  - Complication associated with device [Recovered/Resolved]
  - Vaginal haemorrhage [Unknown]
